FAERS Safety Report 10960008 (Version 1)
Quarter: 2015Q1

REPORT INFORMATION
  Report Type: Spontaneous
  Country: US (occurrence: None)
  Receive Date: 20150226
  Receipt Date: 20150226
  Transmission Date: 20150721
  Serious: Yes (Other)
  Sender: FDA-Public Use
  Company Number: TPA2012A04298

PATIENT
  Age: 73 Year
  Sex: Male
  Weight: 77.11 kg

DRUGS (3)
  1. ACTOS [Suspect]
     Active Substance: PIOGLITAZONE HYDROCHLORIDE
     Indication: TYPE 2 DIABETES MELLITUS
  2. INSULIN (INSULIN) [Concomitant]
     Active Substance: INSULIN NOS
  3. AVANDIA [Suspect]
     Active Substance: ROSIGLITAZONE MALEATE
     Dosage: 1 IN 1 D
     Route: 048

REACTIONS (5)
  - Dysuria [None]
  - Bladder transitional cell carcinoma [None]
  - Pollakiuria [None]
  - Haematuria [None]
  - Micturition urgency [None]

NARRATIVE: CASE EVENT DATE: 20100720
